FAERS Safety Report 5237075 (Version 2)
Quarter: 2013Q2

REPORT INFORMATION
  Report Type: Spontaneous
  Country: US (occurrence: None)
  Receive Date: 19950202
  Receipt Date: 20130606
  Transmission Date: 20140414
  Serious: Yes (Hospitalization)
  Sender: FDA-Public Use
  Company Number: 33248

PATIENT
  Age: 41 Year
  Sex: Female
  Weight: 104 kg

DRUGS (20)
  1. GLASSIA (ALPHA-PROTEINASE INHIBITOR (HUMAN)) KAMADA [Suspect]
     Indication: ALPHA-1 ANTI-TRYPSIN DEFICIENCY
     Route: 042
     Dates: start: 20121116, end: 20121129
  2. TRAZODONE [Concomitant]
  3. THEOPHYLLINE [Concomitant]
  4. SPIREVA [Concomitant]
  5. REQUIPT [Concomitant]
  6. PREDNISONE [Concomitant]
  7. POTASSIUM [Concomitant]
  8. PEPCID [Concomitant]
  9. PAROXETINE [Concomitant]
  10. PRILOSEC [Concomitant]
  11. MOBIC [Concomitant]
  12. METOCLOPRAMIDE [Concomitant]
  13. HYDRALAZINE [Concomitant]
  14. FERROUS SULFATE [Concomitant]
  15. BUSPAR [Concomitant]
  16. DUONEB [Concomitant]
  17. ALBUTEROL [Concomitant]
  18. VENTOLIN [Concomitant]
  19. ZYRTEC [Concomitant]
  20. MUCUS RELIEF AND GEODON [Concomitant]

REACTIONS (7)
  - ASTHENIA [None]
  - ARTHRALGIA [None]
  - Chronic obstructive pulmonary disease [None]
  - Headache [None]
  - Dyspnoea [None]
  - Nausea [None]
  - Influenza like illness [None]
